FAERS Safety Report 18466402 (Version 1)
Quarter: 2020Q4

REPORT INFORMATION
  Report Type: Report from Study
  Country: US (occurrence: US)
  Receive Date: 20201105
  Receipt Date: 20201105
  Transmission Date: 20210114
  Serious: Yes (Other)
  Sender: FDA-Public Use
  Company Number: US-SUN PHARMACEUTICAL INDUSTRIES LTD-2020R1-266355

PATIENT
  Age: 41 Year
  Sex: Female

DRUGS (3)
  1. LEUPROLIDE [Suspect]
     Active Substance: LEUPROLIDE
     Dosage: 7.4 MILLIGRAM, MONTHLY
     Route: 030
  2. LEUPROLIDE [Suspect]
     Active Substance: LEUPROLIDE
     Indication: BREAST CANCER
     Dosage: 3.75 MILLIGRAM, MONTHLY
     Route: 030
  3. EXEMESTANE. [Suspect]
     Active Substance: EXEMESTANE
     Indication: BREAST CANCER
     Dosage: 25 MILLIGRAM, DAILY
     Route: 048

REACTIONS (2)
  - Drug ineffective [Not Recovered/Not Resolved]
  - Therapeutic product cross-reactivity [Unknown]
